FAERS Safety Report 9365063 (Version 1)
Quarter: 2013Q2

REPORT INFORMATION
  Report Type: Spontaneous
  Country: US (occurrence: US)
  Receive Date: 20130624
  Receipt Date: 20130624
  Transmission Date: 20140414
  Serious: Yes (Other)
  Sender: FDA-Public Use
  Company Number: US-ALLERGAN-1309041US

PATIENT
  Sex: Female

DRUGS (4)
  1. BOTOX COSMETIC [Suspect]
     Indication: SKIN WRINKLING
     Dosage: 12 UNITS, SINGLE
     Route: 030
     Dates: start: 20130613, end: 20130613
  2. BOTOX COSMETIC [Suspect]
     Indication: SKIN WRINKLING
     Dosage: 12 UNITS, SINGLE
     Route: 030
     Dates: start: 20130613, end: 20130613
  3. MOTRIN [Concomitant]
     Indication: PAIN
  4. VICODIN [Concomitant]
     Indication: PAIN

REACTIONS (6)
  - Activities of daily living impaired [Not Recovered/Not Resolved]
  - Back pain [Recovering/Resolving]
  - Pain [Recovering/Resolving]
  - Neck pain [Recovering/Resolving]
  - Myalgia [Recovering/Resolving]
  - Hyperhidrosis [Unknown]
